FAERS Safety Report 23595824 (Version 1)
Quarter: 2024Q1

REPORT INFORMATION
  Report Type: Spontaneous
  Country: None (occurrence: None)
  Receive Date: 20240305
  Receipt Date: 20240305
  Transmission Date: 20240410
  Serious: Yes (Hospitalization, Other)
  Sender: FDA-Public Use
  Company Number: Unichem Pharmaceuticals (USA) Inc-UCM202402-000179

PATIENT
  Age: 32 Year
  Sex: Female

DRUGS (1)
  1. METFORMIN HYDROCHLORIDE [Suspect]
     Active Substance: METFORMIN HYDROCHLORIDE
     Indication: Diabetes mellitus
     Dosage: UNKNOWN

REACTIONS (5)
  - Cerebrovascular accident [Recovered/Resolved]
  - Status epilepticus [Recovered/Resolved]
  - MELAS syndrome [Recovered/Resolved]
  - Condition aggravated [Recovered/Resolved]
  - Lactic acidosis [Recovered/Resolved]
